FAERS Safety Report 23422299 (Version 2)
Quarter: 2024Q1

REPORT INFORMATION
  Report Type: Spontaneous
  Country: DE (occurrence: DE)
  Receive Date: 20240119
  Receipt Date: 20240119
  Transmission Date: 20240410
  Serious: Yes (Other)
  Sender: FDA-Public Use
  Company Number: DE-BRISTOL-MYERS SQUIBB COMPANY-2023-074346

PATIENT
  Age: 53 Year
  Sex: Male
  Weight: 76.7 kg

DRUGS (32)
  1. DOCETAXEL [Suspect]
     Active Substance: DOCETAXEL\DOCETAXEL ANHYDROUS
     Indication: Gastric cancer
     Dosage: 103 MILLIGRAM, 2 WEEK
     Route: 042
     Dates: start: 20230420, end: 20230525
  2. DOCETAXEL [Suspect]
     Active Substance: DOCETAXEL\DOCETAXEL ANHYDROUS
     Dosage: 103 MILLIGRAM, 2 WEEK
     Route: 042
     Dates: start: 20230504, end: 20230525
  3. OXALIPLATIN [Suspect]
     Active Substance: OXALIPLATIN
     Indication: Gastric cancer
     Dosage: 170 MILLIGRAM, 2 WEEK
     Route: 042
     Dates: start: 20230420, end: 20230915
  4. FLUOROURACIL [Suspect]
     Active Substance: FLUOROURACIL
     Indication: Gastric cancer
     Dosage: 5300 MILLIGRAM, 2 WEEK
     Route: 042
     Dates: start: 20230420
  5. FLUOROURACIL [Suspect]
     Active Substance: FLUOROURACIL
     Dosage: 5300 MILLIGRAM, 2 WEEK
     Route: 042
     Dates: start: 20230504
  6. OPDIVO [Suspect]
     Active Substance: NIVOLUMAB
     Indication: Gastric cancer
     Dosage: 240 MILLIGRAM, 2 WEEK
     Route: 042
     Dates: start: 20230420
  7. OPDIVO [Suspect]
     Active Substance: NIVOLUMAB
     Dosage: 240 MILLIGRAM, 2 WEEK
     Route: 042
     Dates: start: 20230504
  8. PREDNISOLONE [Concomitant]
     Active Substance: PREDNISOLONE
     Indication: Platelet count decreased
     Dosage: 50 MILLIGRAM, ONCE A DAY
     Route: 048
     Dates: start: 20230516
  9. GRANISETRON [Concomitant]
     Active Substance: GRANISETRON
     Indication: Prophylaxis
     Dosage: 3 MILLIGRAM, 2 WEEK
     Route: 042
     Dates: start: 20230420, end: 20230420
  10. GRANISETRON [Concomitant]
     Active Substance: GRANISETRON
     Dosage: 3 MILLIGRAM, 2 WEEK
     Route: 042
     Dates: start: 20230504, end: 20230504
  11. GRANISETRON [Concomitant]
     Active Substance: GRANISETRON
     Dosage: 3 MILLIGRAM, 2 WEEK
     Route: 042
     Dates: start: 20230525, end: 20230525
  12. GRANISETRON [Concomitant]
     Active Substance: GRANISETRON
     Dosage: 3 MILLIGRAM, 2 WEEK
     Route: 042
     Dates: start: 20230615
  13. DEXAMETHASONE [Concomitant]
     Active Substance: DEXAMETHASONE
     Indication: Platelet count decreased
     Dosage: 4 MILLIGRAM, ONCE A DAY
     Route: 048
     Dates: start: 20230403, end: 20230525
  14. DEXAMETHASONE [Concomitant]
     Active Substance: DEXAMETHASONE
     Dosage: 8 MILLIGRAM, ONCE A DAY
     Route: 042
     Dates: start: 20230420, end: 20230420
  15. DEXAMETHASONE [Concomitant]
     Active Substance: DEXAMETHASONE
     Dosage: 8 MILLIGRAM, ONCE A DAY
     Route: 042
     Dates: start: 20230504, end: 20230504
  16. DEXAMETHASONE [Concomitant]
     Active Substance: DEXAMETHASONE
     Dosage: 8 MILLIGRAM, ONCE A DAY
     Route: 042
     Dates: start: 20230525, end: 20230525
  17. DEXAMETHASONE [Concomitant]
     Active Substance: DEXAMETHASONE
     Dosage: 4 MILLIGRAM, ONCE A DAY
     Route: 042
     Dates: start: 20230615
  18. NEULASTA [Concomitant]
     Active Substance: PEGFILGRASTIM
     Indication: Prophylaxis
     Dosage: 6 MILLIGRAM, ONCE A DAY
     Route: 059
     Dates: start: 20230525, end: 20230525
  19. NEULASTA [Concomitant]
     Active Substance: PEGFILGRASTIM
     Dosage: 6 MILLIGRAM, ONCE A DAY (BIWEEKLY)
     Route: 059
     Dates: start: 20230615
  20. LEUCOVORIN [Concomitant]
     Active Substance: LEUCOVORIN\LEUCOVORIN CALCIUM
     Indication: Product used for unknown indication
     Dosage: 410 MILLIGRAM, ONCE A DAY
     Route: 042
     Dates: start: 20230420, end: 20230420
  21. LEUCOVORIN [Concomitant]
     Active Substance: LEUCOVORIN\LEUCOVORIN CALCIUM
     Dosage: 410 MILLIGRAM, ONCE A DAY
     Route: 042
     Dates: start: 20230504, end: 20230504
  22. LEUCOVORIN [Concomitant]
     Active Substance: LEUCOVORIN\LEUCOVORIN CALCIUM
     Dosage: 410 MILLIGRAM, ONCE A DAY
     Route: 042
     Dates: start: 20230525, end: 20230525
  23. LEUCOVORIN [Concomitant]
     Active Substance: LEUCOVORIN\LEUCOVORIN CALCIUM
     Dosage: 200 MILLIGRAM, ONCE A DAY (BIWEEKLY)
     Route: 042
     Dates: start: 20230615
  24. PANTOZOL [Concomitant]
     Active Substance: PANTOPRAZOLE SODIUM
     Indication: Prophylaxis
     Dosage: 40 MILLIGRAM, ONCE A DAY
     Route: 048
     Dates: start: 20230330
  25. LOPERAMIDE [Concomitant]
     Active Substance: LOPERAMIDE
     Indication: Prophylaxis
     Dosage: 2 MILLIGRAM
     Route: 048
     Dates: start: 20230330
  26. CIMETIDINE [Concomitant]
     Active Substance: CIMETIDINE
     Indication: Prophylaxis
     Dosage: 200 MILLIGRAM, ONCE A DAY
     Route: 017
     Dates: start: 20230914, end: 20230914
  27. CIMETIDINE [Concomitant]
     Active Substance: CIMETIDINE
     Dosage: 200 MILLIGRAM, ONCE A DAY
     Route: 017
     Dates: start: 20230928, end: 20230928
  28. PREDNISOLONE SODIUM SUCCINATE [Concomitant]
     Active Substance: PREDNISOLONE SODIUM SUCCINATE
     Indication: Prophylaxis
     Dosage: 250 MILLIGRAM, ONCE A DAY
     Route: 017
     Dates: start: 20230615, end: 20230615
  29. CLEMASTINE FUMARATE [Concomitant]
     Active Substance: CLEMASTINE FUMARATE
     Indication: Prophylaxis
     Dosage: 2 MILLIGRAM
     Route: 017
     Dates: start: 20230615, end: 20230615
  30. CLEMASTINE FUMARATE [Concomitant]
     Active Substance: CLEMASTINE FUMARATE
     Dosage: 2 MILLIGRAM
     Route: 017
     Dates: start: 20230914, end: 20230914
  31. MCP [Concomitant]
     Active Substance: METOCLOPRAMIDE HYDROCHLORIDE
     Indication: Prophylaxis
     Dosage: 10 MILLIGRAM, ONCE A DAY
     Route: 017
     Dates: start: 20230615, end: 20230615
  32. DIMENHYDRINATE [Concomitant]
     Active Substance: DIMENHYDRINATE
     Indication: Prophylaxis
     Dosage: 62 MILLIGRAM
     Route: 017
     Dates: start: 20230615, end: 20230615

REACTIONS (8)
  - Dermatitis exfoliative generalised [Recovered/Resolved]
  - Neutropenia [Recovered/Resolved]
  - Leukopenia [Recovered/Resolved]
  - Hepatic enzyme increased [Recovered/Resolved]
  - Platelet count decreased [Recovered/Resolved]
  - Palmar-plantar erythrodysaesthesia syndrome [Recovered/Resolved]
  - Vomiting [Recovered/Resolved]
  - Nausea [Recovered/Resolved]

NARRATIVE: CASE EVENT DATE: 20230504
